FAERS Safety Report 15326291 (Version 3)
Quarter: 2018Q3

REPORT INFORMATION
  Report Type: Report from Study
  Country: CA (occurrence: CA)
  Receive Date: 20180828
  Receipt Date: 20180921
  Transmission Date: 20181010
  Serious: Yes (Hospitalization, Other)
  Sender: FDA-Public Use
  Company Number: CA-GILEAD-2018-0358355

PATIENT
  Age: 60 Year
  Sex: Male

DRUGS (2)
  1. SOFOSBUVIR W/VELPATASVIR/VOXILAPREVIR [Suspect]
     Active Substance: SOFOSBUVIR\VELPATASVIR\VOXILAPREVIR
     Indication: CHRONIC HEPATITIS C
     Dosage: 1 DF, UNK
     Route: 048
     Dates: start: 20180605, end: 201806
  2. SOFOSBUVIR W/VELPATASVIR/VOXILAPREVIR [Suspect]
     Active Substance: SOFOSBUVIR\VELPATASVIR\VOXILAPREVIR
     Dosage: 1 DF, UNK
     Route: 048
     Dates: start: 2018

REACTIONS (6)
  - Malaise [Unknown]
  - Treatment noncompliance [Unknown]
  - Hepatitis C virus test positive [Not Recovered/Not Resolved]
  - Intentional dose omission [Recovered/Resolved]
  - Off label use [Not Recovered/Not Resolved]
  - Mental disorder [Unknown]

NARRATIVE: CASE EVENT DATE: 2018
